FAERS Safety Report 17163246 (Version 1)
Quarter: 2019Q4

REPORT INFORMATION
  Report Type: Spontaneous
  Country: TW (occurrence: TW)
  Receive Date: 20191217
  Receipt Date: 20191217
  Transmission Date: 20200122
  Serious: Yes (Other)
  Sender: FDA-Public Use
  Company Number: TW-ACCORD-164758

PATIENT
  Age: 46 Year
  Sex: Female

DRUGS (2)
  1. PACLITAXEL/PACLITAXEL LIPOSOME [Suspect]
     Active Substance: PACLITAXEL
     Indication: CERVIX CARCINOMA STAGE II
     Dosage: CYCLE, PACLITAXEL 80 MG/M*2 WEEKLY
  2. CISPLATIN. [Concomitant]
     Active Substance: CISPLATIN
     Indication: CERVIX CARCINOMA STAGE II
     Dosage: CYCLE, CISPLATIN 20 MG/M*2

REACTIONS (4)
  - Dermatitis [Recovered/Resolved]
  - Folliculitis [Recovered/Resolved]
  - Erythema [Recovered/Resolved]
  - Alopecia scarring [Recovered/Resolved]
